FAERS Safety Report 20773412 (Version 7)
Quarter: 2022Q3

REPORT INFORMATION
  Report Type: Report from Study
  Country: ES (occurrence: None)
  Receive Date: 20220502
  Receipt Date: 20220715
  Transmission Date: 20221027
  Serious: Yes (Hospitalization)
  Sender: FDA-Public Use
  Company Number: ES-Eisai Medical Research-EC-2022-113968

PATIENT
  Age: 69 Year
  Sex: Male
  Weight: 90.4 kg

DRUGS (12)
  1. LENVATINIB [Suspect]
     Active Substance: LENVATINIB
     Indication: Clear cell renal cell carcinoma
     Route: 048
     Dates: start: 20220411, end: 20220420
  2. LENVATINIB [Suspect]
     Active Substance: LENVATINIB
     Route: 048
     Dates: start: 20220512
  3. QUAVONLIMAB [Suspect]
     Active Substance: QUAVONLIMAB
     Indication: Clear cell renal cell carcinoma
     Dosage: MK-1308A (MK-1308 25MG + PEMBROLIZUMAB 400MG)
     Route: 042
     Dates: start: 20220411, end: 20220411
  4. PEMBROLIZUMAB [Suspect]
     Active Substance: PEMBROLIZUMAB
     Dosage: MK-1308A (MK-1308 25MG + PEMBROLIZUMAB 400MG)
     Route: 042
     Dates: start: 20220524
  5. FEBUXOSTAT [Concomitant]
     Active Substance: FEBUXOSTAT
     Dates: start: 20201130, end: 20220425
  6. OLMESARTAN MEDOXOMIL [Concomitant]
     Active Substance: OLMESARTAN MEDOXOMIL
     Dates: start: 20211020, end: 20220425
  7. ZALDIAR [Concomitant]
     Active Substance: ACETAMINOPHEN\TRAMADOL HYDROCHLORIDE
     Dates: start: 20220114, end: 20220425
  8. OMEPRAZOLE [Concomitant]
     Active Substance: OMEPRAZOLE
     Dates: start: 202203, end: 20220425
  9. ASPIRIN [Concomitant]
     Active Substance: ASPIRIN
     Dates: start: 20210603, end: 20220601
  10. ATORVASTATIN [Concomitant]
     Active Substance: ATORVASTATIN
     Dates: start: 20211102, end: 20220425
  11. LYRICA [Concomitant]
     Active Substance: PREGABALIN
     Dates: start: 20220314, end: 20220425
  12. PREGABALIN [Concomitant]
     Active Substance: PREGABALIN
     Dates: start: 20200425, end: 20220426

REACTIONS (2)
  - Cholangitis acute [Recovered/Resolved]
  - Anaemia [Recovering/Resolving]

NARRATIVE: CASE EVENT DATE: 20220411
